FAERS Safety Report 4549437-0 (Version None)
Quarter: 2005Q1

REPORT INFORMATION
  Report Type: 
  Country: None (occurrence: None)
  Receive Date: 20050106
  Receipt Date: 20041220
  Transmission Date: 20050727
  Serious: Yes (Death)
  Sender: FDA-Public Use
  Company Number: USA041184091

PATIENT
  Age: 25 Year
  Sex: Male

DRUGS (4)
  1. SYMBAX-OLANZAPINE 12 MG/ FLUOXETINE 25 MG (OLANZAPINE) [Suspect]
     Indication: BIPOLAR I DISORDER
     Dates: start: 20041025
  2. ZYPREXA [Suspect]
     Indication: BIPOLAR DISORDER
     Dosage: 2.5 MG/1 DAY
     Dates: start: 20041018, end: 20041024
  3. ZOLOFT [Concomitant]
  4. METHADONE HCL [Concomitant]

REACTIONS (10)
  - ALCOHOL USE [None]
  - COMPLETED SUICIDE [None]
  - COUGH [None]
  - DEPRESSED LEVEL OF CONSCIOUSNESS [None]
  - HICCUPS [None]
  - HYPERSOMNIA [None]
  - INCREASED APPETITE [None]
  - OVERDOSE [None]
  - TREATMENT NONCOMPLIANCE [None]
  - VOMITING [None]
